FAERS Safety Report 4698754-2 (Version None)
Quarter: 2005Q2

REPORT INFORMATION
  Report Type: 
  Country: None (occurrence: None)
  Receive Date: 20050621
  Receipt Date: 20050606
  Transmission Date: 20051028
  Serious: Yes (Life-Threatening, Hospitalization)
  Sender: FDA-Public Use
  Company Number: 2005-01221

PATIENT
  Age: 67 Year
  Sex: Male

DRUGS (5)
  1. VELCADE [Suspect]
     Indication: MULTIPLE MYELOMA
     Dosage: 2.50 MG, 2/WEEK, INTRAVENOUS
     Route: 042
     Dates: start: 20050530, end: 20050602
  2. METOCLOPRAMIDE [Concomitant]
  3. SIMVASTATIN [Concomitant]
  4. AMITRIPTYLINE (AMITRIPTYLINE) [Concomitant]
  5. PANTOPRAZOLE SODIUM [Concomitant]

REACTIONS (1)
  - FEBRILE NEUTROPENIA [None]
